FAERS Safety Report 6194158-4 (Version None)
Quarter: 2009Q2

REPORT INFORMATION
  Report Type: 
  Country: None (occurrence: None)
  Receive Date: 20090518
  Receipt Date: 20090511
  Transmission Date: 20091009
  Serious: Yes (Other)
  Sender: FDA-Public Use
  Company Number: GB-JNJCH-2009011375

PATIENT
  Sex: Female

DRUGS (2)
  1. FRESHBURST LISTERINE [Suspect]
     Indication: DENTAL DISORDER PROPHYLAXIS
     Dosage: TEXT:1/4 CAPFUL TWICE
     Route: 048
     Dates: start: 20090411, end: 20090413
  2. NAPROXEN [Concomitant]
     Indication: BACK PAIN
     Dosage: TEXT:OCCASIONAL USE WHEN NEEDED FOR 1 YEAR
     Route: 065

REACTIONS (7)
  - ANAPHYLACTIC SHOCK [None]
  - ASTHENIA [None]
  - GLOSSODYNIA [None]
  - LOCAL SWELLING [None]
  - MALAISE [None]
  - PANIC ATTACK [None]
  - TONGUE DISCOLOURATION [None]
